FAERS Safety Report 8743618 (Version 3)
Quarter: 2012Q4

REPORT INFORMATION
  Report Type: 
  Country: US (occurrence: US)
  Receive Date: 20120824
  Receipt Date: 20121210
  Transmission Date: 20130627
  Serious: Yes (Hospitalization)
  Sender: FDA-Public Use
  Company Number: US-ELI_LILLY_AND_COMPANY-US201208005253

PATIENT
  Age: 63 Year
  Sex: Female

DRUGS (4)
  1. FORTEO [Suspect]
     Indication: OSTEOPOROSIS
     Dosage: 20 ug, qd
     Dates: start: 20120723
  2. FORTEO [Suspect]
     Dosage: 20 ug, qd
  3. FORTEO [Suspect]
     Dosage: 20 ug, qd
  4. FORTEO [Suspect]
     Dosage: 20 ug, qd

REACTIONS (8)
  - Fall [Unknown]
  - Decreased appetite [Unknown]
  - Dehydration [Unknown]
  - Drug dose omission [Unknown]
  - Fatigue [Unknown]
  - Foot fracture [Unknown]
  - Intentional drug misuse [Unknown]
  - Injection site bruising [Unknown]
